FAERS Safety Report 20662523 (Version 1)
Quarter: 2022Q2

REPORT INFORMATION
  Report Type: Spontaneous
  Country: FR (occurrence: FR)
  Receive Date: 20220401
  Receipt Date: 20220401
  Transmission Date: 20220720
  Serious: Yes (Hospitalization)
  Sender: FDA-Public Use
  Company Number: None

PATIENT
  Age: 36 Year
  Sex: Male

DRUGS (7)
  1. PROPOFOL [Suspect]
     Active Substance: PROPOFOL
     Indication: General anaesthesia
     Dosage: 30 MG (RENOUVELE 7X)
     Route: 042
     Dates: start: 20211224, end: 20211224
  2. ONDANSETRON [Suspect]
     Active Substance: ONDANSETRON
     Indication: Nausea
     Dosage: 4 MG, ONCE/SINGLE (DOSE UNIQUE DE 4 MG)
     Route: 042
     Dates: start: 20211224, end: 20211224
  3. ULTRAVIST [Suspect]
     Active Substance: IOPROMIDE
     Indication: Computerised tomogram
     Dosage: 1 DOSAGE FORM (370 MG D^IODE/ML)
     Route: 042
     Dates: start: 20211222, end: 20211222
  4. PHLOROGLUCINOL [Suspect]
     Active Substance: PHLOROGLUCINOL
     Indication: Pain
     Dosage: 40 MG+40 ?G/4 ML (ADMINISTRATION UNIQUE DE 2 AMPOULES DE 40MG)
     Route: 042
     Dates: start: 20211222, end: 20211222
  5. IBUPROFEN [Suspect]
     Active Substance: IBUPROFEN
     Indication: Pain
     Dosage: 400 MG, QD (EN UNE PRISE)
     Route: 048
     Dates: start: 20211220, end: 20211220
  6. REMIFENTANIL [Suspect]
     Active Substance: REMIFENTANIL
     Indication: General anaesthesia
     Dosage: 8 UG (2 ?G RENOUVELLE 4 FOIS)
     Route: 042
     Dates: start: 20211224, end: 20211224
  7. DROPERIDOL [Suspect]
     Active Substance: DROPERIDOL
     Indication: Nausea
     Dosage: 1.25 MG (EN DOSE UNIQUE)
     Route: 042
     Dates: start: 20211224, end: 20211224

REACTIONS (1)
  - Fixed eruption [Recovered/Resolved]

NARRATIVE: CASE EVENT DATE: 20211224
